FAERS Safety Report 6134275-8 (Version None)
Quarter: 2009Q1

REPORT INFORMATION
  Report Type: 
  Country: None (occurrence: None)
  Receive Date: 20090325
  Receipt Date: 20090310
  Transmission Date: 20090719
  Serious: Yes (Life-Threatening, Hospitalization)
  Sender: FDA-Public Use
  Company Number: 2009S1004554

PATIENT
  Age: 67 Year
  Sex: Female

DRUGS (14)
  1. SIMVASTATIN [Suspect]
     Indication: CORONARY ARTERY DISEASE
     Dosage: 40 MG; ORAL
     Route: 048
     Dates: start: 20070101
  2. FUROSEMIDE [Suspect]
     Indication: HYPERTENSION
     Dosage: 20 MG; ORAL
     Route: 048
  3. PREDNISOLONE [Suspect]
     Indication: RHEUMATOID ARTHRITIS
     Dosage: 5 MG; ORAL
     Route: 048
     Dates: start: 20081201
  4. FALITHROM (PHENPROCOUMON) [Suspect]
     Indication: ATRIAL FIBRILLATION
     Dosage: ORAL
     Route: 048
  5. ACETYLSALICYLIC ACID SRT [Suspect]
     Indication: CORONARY ARTERY DISEASE
     Dosage: 100 MG; ORAL
     Route: 048
     Dates: start: 20070101
  6. XIPAMIDE (XIPAMIDE) [Suspect]
     Indication: HYPERTENSION
     Dosage: 40 MG; ORAL
     Route: 048
  7. INSULIN ACTRAPID HUMAN [Concomitant]
  8. METHOTREXATE SODIUM [Concomitant]
  9. RAMIPRIL [Concomitant]
  10. PENTALONG [Concomitant]
  11. CARMEN [Concomitant]
  12. FLECAINIDE ACETATE [Concomitant]
  13. BISOPROLOL [Concomitant]
  14. TRAMADOL HCL [Concomitant]

REACTIONS (3)
  - DRUG INTERACTION [None]
  - GASTROINTESTINAL HAEMORRHAGE [None]
  - HYPERGLYCAEMIA [None]
